FAERS Safety Report 6761880-8 (Version None)
Quarter: 2010Q2

REPORT INFORMATION
  Report Type: 
  Country: None (occurrence: None)
  Receive Date: 20100609
  Receipt Date: 20100602
  Transmission Date: 20101027
  Serious: No
  Sender: FDA-Public Use
  Company Number: US-JNJFOC-20100601249

PATIENT
  Sex: Male
  Weight: 96.62 kg

DRUGS (4)
  1. SANDOZ FENTANYL TRANSDERMAL SYSTEM [Suspect]
     Indication: PAIN
     Route: 062
  2. SANDOZ FENTANYL TRANSDERMAL SYSTEM [Suspect]
     Route: 062
  3. SANDOZ FENTANYL TRANSDERMAL SYSTEM [Suspect]
     Route: 062
  4. OXYCODONE [Concomitant]
     Indication: BREAKTHROUGH PAIN
     Dosage: 2-4 TIMES
     Route: 048

REACTIONS (5)
  - DIZZINESS [None]
  - DRUG EFFECT DECREASED [None]
  - INCORRECT DRUG ADMINISTRATION RATE [None]
  - PRODUCT ADHESION ISSUE [None]
  - WRONG TECHNIQUE IN DRUG USAGE PROCESS [None]
